FAERS Safety Report 6143761-6 (Version None)
Quarter: 2009Q2

REPORT INFORMATION
  Report Type: 
  Country: None (occurrence: None)
  Receive Date: 20090403
  Receipt Date: 20090325
  Transmission Date: 20091009
  Serious: Yes (Hospitalization, Other)
  Sender: FDA-Public Use
  Company Number: PHNR2004AU01651

PATIENT
  Sex: Male

DRUGS (3)
  1. CLOZARIL [Suspect]
     Indication: SCHIZOPHRENIA
     Dosage: 50 - 700 MG/DAY
     Route: 048
     Dates: start: 19960416, end: 20040819
  2. CLOZARIL [Suspect]
     Dosage: 300 MG, QD
     Route: 048
     Dates: start: 20040820
  3. HYPOGLYCAEMIC TABLETS [Suspect]
     Route: 048
     Dates: start: 20041201

REACTIONS (6)
  - DIZZINESS [None]
  - HEPATITIS C [None]
  - HYPERHIDROSIS [None]
  - LIVER FUNCTION TEST ABNORMAL [None]
  - THIRST [None]
  - TYPE 2 DIABETES MELLITUS [None]
